FAERS Safety Report 5611271-8 (Version None)
Quarter: 2008Q1

REPORT INFORMATION
  Report Type: 
  Country: None (occurrence: None)
  Receive Date: 20080201
  Receipt Date: 20080120
  Transmission Date: 20080703
  Serious: Yes (Other)
  Sender: FDA-Public Use
  Company Number: US-PFIZER INC-2008006926

PATIENT
  Sex: Male
  Weight: 97.7 kg

DRUGS (5)
  1. LYRICA [Suspect]
     Indication: PAIN
  2. FENTANYL [Concomitant]
  3. FENTANYL CITRATE [Concomitant]
  4. CORTICOSTEROIDS [Concomitant]
  5. DRUG, UNSPECIFIED [Concomitant]
     Indication: PAIN

REACTIONS (1)
  - THYROID NEOPLASM [None]
